FAERS Safety Report 9266117 (Version 1)
Quarter: 2013Q2

REPORT INFORMATION
  Report Type: Spontaneous
  Country: JP (occurrence: JP)
  Receive Date: 20130502
  Receipt Date: 20130502
  Transmission Date: 20140414
  Serious: Yes (Life-Threatening, Hospitalization, Other)
  Sender: FDA-Public Use
  Company Number: JP-AMGEN-JPNSP2011047152

PATIENT
  Age: 68 Year
  Sex: Female
  Weight: 40 kg

DRUGS (12)
  1. ENBREL [Suspect]
     Indication: RHEUMATOID ARTHRITIS
     Dosage: 25 MG, WEEKLY
     Route: 058
     Dates: start: 20101016, end: 20101124
  2. ENBREL [Suspect]
     Dosage: 50 MG, WEEKLY
     Route: 058
     Dates: start: 20101130, end: 20101221
  3. ENBREL [Suspect]
     Dosage: 25 MG, WEEKLY
     Route: 058
     Dates: start: 20110105, end: 20110524
  4. RHEUMATREX /00113802/ [Suspect]
     Indication: RHEUMATOID ARTHRITIS
     Dosage: 6 MG, WEEKLY
     Route: 048
     Dates: start: 2002, end: 20110522
  5. VFEND [Suspect]
     Indication: MENINGITIS CRYPTOCOCCAL
     Dosage: 120-200 MG, 2X/DAY
     Route: 042
     Dates: start: 20110603, end: 20110923
  6. PREDNISOLONE [Suspect]
     Indication: RHEUMATOID ARTHRITIS
     Dosage: 10 MG, 1X/DAY
     Route: 048
  7. TACROLIMUS [Concomitant]
     Dosage: 1 MG, 1X/DAY
  8. FOLIAMIN [Concomitant]
     Indication: RHEUMATOID ARTHRITIS
     Dosage: 5 MG, WEEKLY
     Route: 048
     Dates: end: 20110527
  9. GASTER                             /00706001/ [Concomitant]
     Indication: GASTRIC ULCER
     Dosage: 20 MG, 2X/DAY
     Route: 048
     Dates: end: 20110527
  10. FERROMIA                           /00023516/ [Concomitant]
     Indication: ANAEMIA
     Dosage: 50 MG, 1X/DAY
     Route: 048
     Dates: start: 20101221, end: 20110527
  11. RIZE                               /00624801/ [Concomitant]
     Indication: SLEEP DISORDER
     Dosage: 5 MG, 3X/DAY
     Route: 048
     Dates: start: 20110201, end: 20110527
  12. ARICEPT [Concomitant]
     Indication: DEMENTIA ALZHEIMER^S TYPE
     Dosage: 3 MG, 1X/DAY
     Route: 048
     Dates: start: 20110323

REACTIONS (2)
  - Diarrhoea [Not Recovered/Not Resolved]
  - Meningitis cryptococcal [Recovering/Resolving]
